FAERS Safety Report 9448298 (Version 2)
Quarter: 2013Q4

REPORT INFORMATION
  Report Type: Spontaneous
  Country: IT (occurrence: IT)
  Receive Date: 20130808
  Receipt Date: 20131017
  Transmission Date: 20140711
  Serious: Yes (Hospitalization)
  Sender: FDA-Public Use
  Company Number: IT-SANOFI-AVENTIS-2013SA077173

PATIENT
  Age: 77 Year
  Sex: Female

DRUGS (9)
  1. LANTUS [Suspect]
     Indication: TYPE 1 DIABETES MELLITUS
     Dosage: VIAL
     Route: 058
     Dates: start: 20090101, end: 20130726
  2. APIDRA [Suspect]
     Indication: TYPE 1 DIABETES MELLITUS
     Route: 058
     Dates: start: 20130401, end: 20130726
  3. SIMVASTATIN [Concomitant]
     Route: 048
  4. FUROSEMIDE [Concomitant]
     Route: 048
  5. ANTRA [Concomitant]
     Dosage: STRENGTH: 20 MG
     Route: 048
  6. DEURSIL [Concomitant]
     Dosage: FORM: MODIFIED RELEASE HARD CAP?STRENGTH: 450 MG
     Route: 048
  7. REQUIP [Concomitant]
     Dosage: DOSE: 1 POSOLOGICAL UNIT?STRENGTH: 8 MG
     Route: 048
  8. MADOPAR [Concomitant]
     Dosage: STRENGTH: 50 MG +200 MG
  9. INDERAL [Concomitant]

REACTIONS (4)
  - Fall [Recovered/Resolved]
  - Injury [Recovered/Resolved]
  - Hypoglycaemia [Recovered/Resolved]
  - Malaise [Recovered/Resolved]
